FAERS Safety Report 12720756 (Version 2)
Quarter: 2016Q4

REPORT INFORMATION
  Report Type: Spontaneous
  Country: JP (occurrence: JP)
  Receive Date: 20160907
  Receipt Date: 20161111
  Transmission Date: 20170207
  Serious: No
  Sender: FDA-Public Use
  Company Number: JP-JNJFOC-20160903168

PATIENT
  Age: 85 Year
  Sex: Male

DRUGS (6)
  1. PREDONINE [Concomitant]
     Active Substance: PREDNISOLONE\PREDNISOLONE ACETATE\PREDNISOLONE SODIUM SUCCINATE
     Indication: HORMONE-REFRACTORY PROSTATE CANCER
     Route: 048
     Dates: start: 20160825
  2. ALFAROL [Concomitant]
     Active Substance: ALFACALCIDOL
     Route: 048
  3. ZYTIGA [Suspect]
     Active Substance: ABIRATERONE ACETATE
     Indication: HORMONE-REFRACTORY PROSTATE CANCER
     Route: 048
     Dates: start: 20160902
  4. GASLON [Concomitant]
     Active Substance: IRSOGLADINE MALEATE
     Route: 048
  5. ZYTIGA [Suspect]
     Active Substance: ABIRATERONE ACETATE
     Indication: HORMONE-REFRACTORY PROSTATE CANCER
     Route: 048
     Dates: start: 20160825, end: 20160901
  6. SENNOSIDE [Concomitant]
     Active Substance: SENNOSIDES
     Route: 048

REACTIONS (4)
  - Prescribed underdose [Unknown]
  - Off label use [Unknown]
  - Bradyphrenia [Recovered/Resolved]
  - Somnolence [Unknown]

NARRATIVE: CASE EVENT DATE: 2016
